FAERS Safety Report 23413904 (Version 2)
Quarter: 2024Q1

REPORT INFORMATION
  Report Type: Spontaneous
  Country: US (occurrence: US)
  Receive Date: 20240117
  Receipt Date: 20240214
  Transmission Date: 20240409
  Serious: No
  Sender: FDA-Public Use
  Company Number: US-BIOGEN-2024BI01245248

PATIENT
  Age: 45 Year
  Sex: Male

DRUGS (1)
  1. QALSODY [Suspect]
     Active Substance: TOFERSEN
     Indication: Amyotrophic lateral sclerosis
     Route: 050
     Dates: start: 20231207, end: 20231221

REACTIONS (3)
  - Procedural pain [Unknown]
  - Product dose omission in error [Unknown]
  - Neurological procedural complication [Unknown]

NARRATIVE: CASE EVENT DATE: 20231201
